FAERS Safety Report 5697584-2 (Version None)
Quarter: 2008Q2

REPORT INFORMATION
  Report Type: 
  Country: None (occurrence: None)
  Receive Date: 20080408
  Receipt Date: 20080403
  Transmission Date: 20081010
  Serious: Yes (Life-Threatening)
  Sender: FDA-Public Use
  Company Number: FR-JNJFOC-20080400839

PATIENT
  Age: 55 Year
  Sex: Female

DRUGS (1)
  1. KETODERM [Suspect]
     Indication: FUNGAL INFECTION
     Route: 061

REACTIONS (1)
  - ASTHMA [None]
